FAERS Safety Report 15591698 (Version 1)
Quarter: 2018Q4

REPORT INFORMATION
  Report Type: Spontaneous
  Country: US (occurrence: US)
  Receive Date: 20181106
  Receipt Date: 20181106
  Transmission Date: 20190205
  Serious: Yes (Other)
  Sender: FDA-Public Use
  Company Number: US-PFIZER INC-2018442033

PATIENT
  Age: 83 Year
  Sex: Female
  Weight: 69.85 kg

DRUGS (2)
  1. LYRICA [Suspect]
     Active Substance: PREGABALIN
     Dosage: 150 MG, 1X/DAY
  2. LYRICA [Suspect]
     Active Substance: PREGABALIN
     Indication: DIABETIC NEUROPATHY
     Dosage: 150 MG, 2X/DAY

REACTIONS (4)
  - Burning sensation [Not Recovered/Not Resolved]
  - Product use issue [Unknown]
  - Neuropathy peripheral [Unknown]
  - Condition aggravated [Unknown]
